FAERS Safety Report 8452665-5 (Version None)
Quarter: 2012Q2

REPORT INFORMATION
  Report Type: 
  Country: None (occurrence: None)
  Receive Date: 20120620
  Receipt Date: 20120612
  Transmission Date: 20120825
  Serious: Yes (Hospitalization, Other)
  Sender: FDA-Public Use
  Company Number: PHHY2012NZ041738

PATIENT
  Sex: Male

DRUGS (10)
  1. CLOZARIL [Suspect]
     Indication: SCHIZOPHRENIA
     Dates: start: 20040803
  2. OMEPRAZOLE [Concomitant]
     Dosage: 40 MG, QD
     Route: 048
  3. LAXILO [Concomitant]
     Dosage: 2 DF, BID
  4. ERYTHROMYCIN [Concomitant]
  5. POTASSIUM ACETATE [Concomitant]
  6. NICOTINE [Concomitant]
     Route: 061
  7. ROXITHROMYCIN [Concomitant]
     Dosage: 300 MG, QD
     Route: 048
  8. ENOXAPARIN SODIUM [Concomitant]
  9. CLOZARIL [Suspect]
     Dosage: 400 MG, NOCTE
     Route: 048
  10. AUGMENTIN '125' [Concomitant]
     Dosage: 625 MG, TID
     Route: 048

REACTIONS (24)
  - HEPATIC CIRRHOSIS [None]
  - ASTHENIA [None]
  - FULL BLOOD COUNT DECREASED [None]
  - WEIGHT DECREASED [None]
  - PLATELET COUNT DECREASED [None]
  - CIRCULATORY COLLAPSE [None]
  - PYREXIA [None]
  - LUNG DISORDER [None]
  - PNEUMONIA [None]
  - THIRST [None]
  - HYPOTENSION [None]
  - MUSCULOSKELETAL PAIN [None]
  - LOSS OF CONSCIOUSNESS [None]
  - DECREASED APPETITE [None]
  - HEADACHE [None]
  - DIZZINESS [None]
  - NAUSEA [None]
  - DIABETES MELLITUS [None]
  - RENAL FAILURE ACUTE [None]
  - PAINFUL RESPIRATION [None]
  - COUGH [None]
  - POLYURIA [None]
  - DYSPNOEA [None]
  - NEUTROPHIL COUNT DECREASED [None]
